FAERS Safety Report 4699117-6 (Version None)
Quarter: 2005Q2

REPORT INFORMATION
  Report Type: 
  Country: None (occurrence: None)
  Receive Date: 20050624
  Receipt Date: 20050614
  Transmission Date: 20051028
  Serious: Yes (Other)
  Sender: FDA-Public Use
  Company Number: CA-JNJFOC-20050603943

PATIENT
  Sex: Male
  Weight: 57.61 kg

DRUGS (6)
  1. DURAGESIC-100 [Suspect]
     Route: 062
     Dates: start: 20020901
  2. DURAGESIC-100 [Suspect]
     Route: 062
     Dates: start: 20020901
  3. LOSEC [Concomitant]
     Indication: ULCER
     Dates: start: 19970101
  4. SENOKOT [Concomitant]
  5. ALBUTEROL [Concomitant]
     Indication: INHALATION THERAPY
     Dosage: DAILY
  6. FLOVENT [Concomitant]
     Indication: INHALATION THERAPY
     Dosage: DAILY

REACTIONS (11)
  - APPLICATION SITE ERYTHEMA [None]
  - BODY TEMPERATURE INCREASED [None]
  - CONVULSION [None]
  - DECREASED APPETITE [None]
  - HEADACHE [None]
  - HYPERHIDROSIS [None]
  - LOSS OF CONSCIOUSNESS [None]
  - RASH GENERALISED [None]
  - TACHYCARDIA [None]
  - VOMITING [None]
  - WEIGHT DECREASED [None]
